FAERS Safety Report 12192645 (Version 1)
Quarter: 2016Q1

REPORT INFORMATION
  Report Type: Spontaneous
  Country: US (occurrence: US)
  Receive Date: 20160318
  Receipt Date: 20160318
  Transmission Date: 20160526
  Serious: No
  Sender: FDA-Public Use
  Company Number: US-PFIZER INC-2016119317

PATIENT
  Age: 38 Year
  Sex: Female
  Weight: 100 kg

DRUGS (7)
  1. NAPROXEN. [Concomitant]
     Active Substance: NAPROXEN
     Indication: ARTHRITIS
     Dosage: 500MG, TWICE A DAY
     Dates: start: 2010
  2. LOPRESSOR [Concomitant]
     Active Substance: METOPROLOL TARTRATE
     Indication: BLOOD PRESSURE ABNORMAL
     Dosage: 50 MG, UNK
     Dates: start: 2014
  3. CHANTIX [Suspect]
     Active Substance: VARENICLINE TARTRATE
     Dosage: 1MG, TABLETS, TWICE A DAY MAYBE/BELIEVES IT WAS 1MG, PATIENT TOOK THE WHOLE STARTER PACK
     Route: 048
     Dates: end: 201601
  4. SYNTHROID [Concomitant]
     Active Substance: LEVOTHYROXINE SODIUM
     Indication: THYROID DISORDER
     Dosage: 100MCG, UNK
     Dates: start: 201409
  5. CHANTIX [Suspect]
     Active Substance: VARENICLINE TARTRATE
     Indication: SMOKING CESSATION THERAPY
     Dosage: START OFF AT 0.5MG AND IT GRADUALLY INCREASES AS A TITRATION
     Route: 048
     Dates: start: 201512
  6. OMEPRAZOLE. [Concomitant]
     Active Substance: OMEPRAZOLE
     Indication: GASTROOESOPHAGEAL REFLUX DISEASE
     Dosage: 20MG A DAY
     Dates: start: 2012
  7. METFORMIN [Concomitant]
     Active Substance: METFORMIN HYDROCHLORIDE
     Indication: DIABETES MELLITUS
     Dosage: 1000MG TWICE A DAY
     Dates: start: 201510

REACTIONS (1)
  - Stress [Unknown]
